FAERS Safety Report 9197800 (Version 1)
Quarter: 2013Q1

REPORT INFORMATION
  Report Type: Report from Study
  Country: US (occurrence: US)
  Receive Date: 20130328
  Receipt Date: 20130328
  Transmission Date: 20140127
  Serious: Yes (Other)
  Sender: FDA-Public Use
  Company Number: US-PFIZER INC-2008008933JJ

PATIENT
  Age: 55 Year
  Sex: Female
  Weight: 58.97 kg

DRUGS (3)
  1. IBUPROFEN [Suspect]
     Indication: FIBROMYALGIA
     Dosage: 800 MG THEN REDUCED TO 600 MG DAILY
     Route: 065
     Dates: start: 1988
  2. PREMARIN [Concomitant]
     Route: 065
  3. ATENOLOL [Concomitant]
     Route: 065

REACTIONS (1)
  - Blood potassium increased [Not Recovered/Not Resolved]
